FAERS Safety Report 19884384 (Version 3)
Quarter: 2021Q4

REPORT INFORMATION
  Report Type: Other
  Country: US (occurrence: None)
  Receive Date: 20210927
  Receipt Date: 20211105
  Transmission Date: 20220304
  Serious: Yes (Other)
  Sender: FDA-Public Use
  Company Number: US-ROCHE-2918664

PATIENT
  Age: 44 Year
  Sex: Male
  Weight: 77.180 kg

DRUGS (6)
  1. OCREVUS [Suspect]
     Active Substance: OCRELIZUMAB
     Indication: Multiple sclerosis
     Dosage: NO
     Route: 042
     Dates: end: 202011
  2. RITUXAN [Suspect]
     Active Substance: RITUXIMAB
     Indication: Multiple sclerosis
     Route: 042
     Dates: end: 20201127
  3. RITUXAN [Suspect]
     Active Substance: RITUXIMAB
     Indication: Sarcoidosis
     Route: 042
     Dates: start: 202011, end: 202011
  4. BACLOFEN [Concomitant]
     Active Substance: BACLOFEN
     Indication: Muscle spasms
     Route: 048
  5. BACLOFEN [Concomitant]
     Active Substance: BACLOFEN
     Route: 048
     Dates: start: 2021
  6. TIZANIDINE [Concomitant]
     Active Substance: TIZANIDINE
     Indication: Muscle spasms
     Route: 048
     Dates: start: 2021

REACTIONS (7)
  - Off label use [Unknown]
  - JC polyomavirus test positive [Not Recovered/Not Resolved]
  - Hemiparesis [Unknown]
  - Vitamin D deficiency [Not Recovered/Not Resolved]
  - Gait inability [Not Recovered/Not Resolved]
  - Bedridden [Not Recovered/Not Resolved]
  - Sarcoidosis [Unknown]

NARRATIVE: CASE EVENT DATE: 20210201
